FAERS Safety Report 15625104 (Version 7)
Quarter: 2019Q2

REPORT INFORMATION
  Report Type: Spontaneous
  Country: DE (occurrence: DE)
  Receive Date: 20181116
  Receipt Date: 20190621
  Transmission Date: 20190711
  Serious: Yes (Life-Threatening, Hospitalization, Other)
  Sender: FDA-Public Use
  Company Number: PHHY2018DE154592

PATIENT
  Age: 63 Year
  Sex: Female
  Weight: 100 kg

DRUGS (12)
  1. EMEND [Concomitant]
     Active Substance: APREPITANT
     Indication: PRODUCT USED FOR UNKNOWN INDICATION
     Dosage: 125 MG, UNK
     Route: 048
  2. KEVATRIL [Concomitant]
     Active Substance: GRANISETRON HYDROCHLORIDE
     Indication: PRODUCT USED FOR UNKNOWN INDICATION
     Dosage: 1 MG, UNK
     Route: 042
  3. VALSARTAN HEXAL [Suspect]
     Active Substance: VALSARTAN
     Indication: HYPERTENSION
     Dosage: 160 MG, QD
     Route: 048
     Dates: start: 20130513, end: 20180917
  4. VALSACOR [Concomitant]
     Active Substance: VALSARTAN
     Indication: HYPERTENSION
     Dosage: 160 MG, QD (ONCE DAILY IN THE MORNING)
     Route: 065
     Dates: start: 20180917
  5. HARVONI [Concomitant]
     Active Substance: LEDIPASVIR\SOFOSBUVIR
     Indication: CHRONIC HEPATITIS C
     Dosage: UNK (FOR EIGHT WEEKS)
     Route: 065
     Dates: start: 201706, end: 201708
  6. FORTECORTIN [Concomitant]
     Active Substance: DEXAMETHASONE
     Dosage: 4 MG, UNK (ON DAY 4 AND 5 OF CYCLE)
     Route: 065
  7. FORTECORTIN [Concomitant]
     Active Substance: DEXAMETHASONE
     Indication: PRODUCT USED FOR UNKNOWN INDICATION
     Dosage: 8 MG, UNK
     Route: 042
  8. MAGNESIUM SULFATE. [Concomitant]
     Active Substance: MAGNESIUM SULFATE
     Indication: PRODUCT USED FOR UNKNOWN INDICATION
     Dosage: 1 G, UNK
     Route: 041
  9. ALOXI [Concomitant]
     Active Substance: PALONOSETRON HYDROCHLORIDE
     Indication: PRODUCT USED FOR UNKNOWN INDICATION
     Dosage: 250 UG, UNK
     Route: 065
  10. EMEND [Concomitant]
     Active Substance: APREPITANT
     Dosage: 80 MG, UNK (ON DAY 4 AND 5 OF CYCLE)
     Route: 048
  11. METOCLOPRAMIDE. [Concomitant]
     Active Substance: METOCLOPRAMIDE
     Indication: PRODUCT USED FOR UNKNOWN INDICATION
     Dosage: 20 GTT, TID
     Route: 065
  12. CANDESARTAN. [Concomitant]
     Active Substance: CANDESARTAN
     Indication: PRODUCT USED FOR UNKNOWN INDICATION
     Dosage: UNK
     Route: 065

REACTIONS (18)
  - Humerus fracture [Unknown]
  - Vulvovaginal pain [Unknown]
  - Colitis ulcerative [Unknown]
  - Blood pressure fluctuation [Unknown]
  - Rectal haemorrhage [Unknown]
  - Nausea [Unknown]
  - Neuroendocrine carcinoma [Recovered/Resolved with Sequelae]
  - Breast cancer [Unknown]
  - Cardiac ventricular disorder [Unknown]
  - Teratoma [Unknown]
  - Osteoarthritis [Unknown]
  - Hepatitis B [Recovered/Resolved]
  - Electrocardiogram QT prolonged [Unknown]
  - Diarrhoea haemorrhagic [Unknown]
  - Pain [Unknown]
  - Mucous stools [Unknown]
  - General physical health deterioration [Unknown]
  - Urine output decreased [Unknown]

NARRATIVE: CASE EVENT DATE: 20180115
